FAERS Safety Report 23472414 (Version 1)
Quarter: 2024Q1

REPORT INFORMATION
  Report Type: Spontaneous
  Country: IT (occurrence: IT)
  Receive Date: 20240202
  Receipt Date: 20240202
  Transmission Date: 20240410
  Serious: Yes (Hospitalization)
  Sender: FDA-Public Use
  Company Number: IT-SA-2018SA267252

PATIENT
  Age: 32 Year
  Sex: Female
  Weight: 60 kg

DRUGS (15)
  1. ENALAPRIL MALEATE [Suspect]
     Active Substance: ENALAPRIL MALEATE
     Indication: Hypertension
     Dosage: 20 MG
     Route: 048
  2. BETAMETHASONE [Suspect]
     Active Substance: BETAMETHASONE\BETAMETHASONE DIPROPIONATE
     Indication: Neonatal respiratory distress syndrome prophylaxis
     Dosage: 12 MILLIGRAM, REPEATED AFTER 24 H
     Route: 048
  3. BETAMETHASONE [Suspect]
     Active Substance: BETAMETHASONE\BETAMETHASONE DIPROPIONATE
     Indication: Respiratory distress
  4. PREDNISONE [Suspect]
     Active Substance: PREDNISONE
     Indication: IgA nephropathy
     Dosage: 0.5 MG/KG EVERY OTHER DAY
  5. PREDNISONE [Suspect]
     Active Substance: PREDNISONE
     Dosage: 25 MG, QD
  6. PREDNISONE [Suspect]
     Active Substance: PREDNISONE
     Dosage: UNK, REDUCED TO 25/12.5 MG DAILY
  7. METHYLPREDNISOLONE [Suspect]
     Active Substance: METHYLPREDNISOLONE
     Indication: IgA nephropathy
     Dosage: 1 G FOR 3 CONSECUTIVE DAYS
     Route: 042
  8. OMEPRAZOLE [Suspect]
     Active Substance: OMEPRAZOLE
     Dosage: 20 MG, QD
  9. METHYLDOPA [Suspect]
     Active Substance: METHYLDOPA
     Indication: Blood pressure increased
     Dosage: UNK
  10. METHYLDOPA [Suspect]
     Active Substance: METHYLDOPA
     Dosage: 500 MG, BID
  11. NIFEDIPINE [Suspect]
     Active Substance: NIFEDIPINE
     Indication: Hypertension
     Dosage: 30 MG, QD
  12. FOLIC ACID [Suspect]
     Active Substance: FOLIC ACID
     Dosage: 5 MG, QD
  13. OMEGA-3-ACID ETHYL ESTERS [Suspect]
     Active Substance: OMEGA-3-ACID ETHYL ESTERS
     Dosage: INTEGRATORS DAILY
  14. CALCIUM [Suspect]
     Active Substance: CALCIUM
     Dosage: 500 MG, QD
  15. CHOLECALCIFEROL [Suspect]
     Active Substance: CHOLECALCIFEROL
     Dosage: 25 DROP, QW (100,000 IU)

REACTIONS (6)
  - Premature rupture of membranes [Unknown]
  - Exposure during pregnancy [Unknown]
  - Weight increased [Unknown]
  - Blood pressure increased [Recovered/Resolved]
  - Maternal exposure during pregnancy [Recovered/Resolved]
  - Cushingoid [Unknown]
